FAERS Safety Report 13589082 (Version 1)
Quarter: 2017Q2

REPORT INFORMATION
  Report Type: Spontaneous
  Country: US (occurrence: US)
  Receive Date: 20170529
  Receipt Date: 20170529
  Transmission Date: 20170830
  Serious: No
  Sender: FDA-Public Use
  Company Number: US-ALEXION PHARMACEUTICALS INC.-A201705844

PATIENT

DRUGS (2)
  1. SOLIRIS [Suspect]
     Active Substance: ECULIZUMAB
     Indication: HAEMOLYTIC URAEMIC SYNDROME
     Dosage: UNK
     Route: 042
     Dates: start: 20170510
  2. TACROLIMUS. [Concomitant]
     Active Substance: TACROLIMUS
     Indication: LIVER TRANSPLANT
     Route: 065

REACTIONS (2)
  - White blood cell count increased [Unknown]
  - Lymphopenia [Unknown]
